FAERS Safety Report 4868308-3 (Version None)
Quarter: 2005Q4

REPORT INFORMATION
  Report Type: 
  Country: None (occurrence: None)
  Receive Date: 20051229
  Receipt Date: 20051222
  Transmission Date: 20060501
  Serious: Yes (Other)
  Sender: FDA-Public Use
  Company Number: US-MERCK-0512USA03589

PATIENT

DRUGS (3)
  1. VYTORIN [Suspect]
     Route: 048
  2. VYTORIN [Suspect]
     Route: 048
  3. VYTORIN [Suspect]
     Route: 048

REACTIONS (2)
  - DISCOMFORT [None]
  - MYALGIA [None]
